FAERS Safety Report 8235192-X (Version None)
Quarter: 2012Q1

REPORT INFORMATION
  Report Type: 
  Country: None (occurrence: None)
  Receive Date: 20120307
  Receipt Date: 20110308
  Transmission Date: 20120608
  Serious: Yes (Hospitalization, Other)
  Sender: FDA-Public Use
  Company Number: PHHY2011US14165

PATIENT
  Age: 80 Year
  Sex: Female
  Weight: 61.7 kg

DRUGS (15)
  1. AMIODARONE HCL [Concomitant]
  2. NORCO [Concomitant]
  3. VYTORIN [Concomitant]
  4. ASACOL (MESALAZINE) ENTERIC-FILM-COATED TABLET [Concomitant]
  5. DIGOXIN [Concomitant]
  6. AFINITOR [Suspect]
     Indication: CARCINOID SYNDROME
     Dosage: 10 MG, DAILY, ORAL
     Route: 048
     Dates: start: 20110216, end: 20110217
  7. FERREX (POLYSACCHARIDE-IRON COMPLEX) [Concomitant]
  8. PREDNISONE TAB [Concomitant]
  9. OMEPRAZOLE [Concomitant]
  10. OXYGEN (OXYGEN) [Concomitant]
  11. ALBUTEROL [Concomitant]
  12. SYNTHROID [Concomitant]
  13. TRICOR [Concomitant]
  14. FUROSEMIDE [Concomitant]
  15. KLOR-CON [Concomitant]

REACTIONS (3)
  - DEHYDRATION [None]
  - DIARRHOEA [None]
  - HAEMORRHAGE [None]
